FAERS Safety Report 9144358 (Version 2)
Quarter: 2013Q4

REPORT INFORMATION
  Report Type: Spontaneous
  Country: FR (occurrence: FR)
  Receive Date: 20130306
  Receipt Date: 20131220
  Transmission Date: 20140711
  Serious: Yes (Other)
  Sender: FDA-Public Use
  Company Number: FR-TEVA-389329ISR

PATIENT
  Age: 46 Year
  Sex: Female

DRUGS (4)
  1. ESTREVA [Suspect]
     Dates: start: 2002, end: 2004
  2. ANDROCUR [Suspect]
     Indication: HIRSUTISM
     Route: 048
     Dates: start: 1996, end: 1998
  3. ANDROCUR [Suspect]
     Route: 048
     Dates: start: 2000, end: 2004
  4. ANDROCUR [Suspect]
     Dosage: FOR 10 DAYS EVERY MONTH
     Route: 048
     Dates: start: 2006, end: 2007

REACTIONS (1)
  - Meningioma [Not Recovered/Not Resolved]
